FAERS Safety Report 15000377 (Version 1)
Quarter: 2018Q2

REPORT INFORMATION
  Report Type: Spontaneous
  Country: TR (occurrence: TR)
  Receive Date: 20180612
  Receipt Date: 20180612
  Transmission Date: 20180711
  Serious: Yes (Hospitalization, Other)
  Sender: FDA-Public Use
  Company Number: TR-PFIZER INC-2018231764

PATIENT
  Age: 12 Year
  Sex: Female
  Weight: 50.3 kg

DRUGS (9)
  1. BICARBONATE [Concomitant]
     Indication: RENAL TUBULAR ACIDOSIS
     Dosage: UNK
  2. DDAVP [Concomitant]
     Active Substance: DESMOPRESSIN ACETATE
     Indication: DIABETES INSIPIDUS
     Dosage: 30 UG, 2X/DAY
     Route: 060
  3. LEVOTHYROXINE SODIUM. [Concomitant]
     Active Substance: LEVOTHYROXINE SODIUM
     Indication: HYPOTHYROIDISM
     Dosage: 100 UG, DAILY
  4. SOMATROPIN. [Suspect]
     Active Substance: SOMATROPIN
     Indication: PROTEIN DEFICIENCY
  5. DDAVP [Concomitant]
     Active Substance: DESMOPRESSIN ACETATE
     Indication: DIABETES INSIPIDUS
     Dosage: 5 UG, UNK
     Route: 045
  6. DDAVP [Concomitant]
     Active Substance: DESMOPRESSIN ACETATE
     Dosage: 1.25 UG, DAILY
     Route: 045
  7. HYDROCORTISONE. [Concomitant]
     Active Substance: HYDROCORTISONE
     Indication: ADRENAL INSUFFICIENCY
     Dosage: 10 MG/M2, 3X/DAY
  8. LEVOTHYROXINE SODIUM. [Concomitant]
     Active Substance: LEVOTHYROXINE SODIUM
     Dosage: 2 UG/KG, DAILY
  9. SOMATROPIN. [Suspect]
     Active Substance: SOMATROPIN
     Indication: GROWTH FAILURE
     Dosage: 0.03 MG/KG, DAILY
     Route: 058

REACTIONS (2)
  - Diabetes mellitus [Unknown]
  - Diabetic ketoacidosis [Recovered/Resolved]
